FAERS Safety Report 15533909 (Version 1)
Quarter: 2018Q4

REPORT INFORMATION
  Report Type: Report from Study
  Country: US (occurrence: US)
  Receive Date: 20181019
  Receipt Date: 20181019
  Transmission Date: 20190205
  Serious: Yes (Hospitalization, Disabling, Other)
  Sender: FDA-Public Use
  Company Number: US-GILEAD-2018-0369583

PATIENT
  Age: 63 Year
  Sex: Male

DRUGS (1)
  1. TENOFOVIR DISOPROXIL FUMARATE. [Suspect]
     Active Substance: TENOFOVIR DISOPROXIL FUMARATE
     Indication: CHRONIC HEPATITIS B
     Dosage: 300 MG, QD
     Route: 048
     Dates: start: 2010, end: 20180930

REACTIONS (2)
  - Liver transplant [Recovering/Resolving]
  - Renal impairment [Recovered/Resolved with Sequelae]

NARRATIVE: CASE EVENT DATE: 20150613
